FAERS Safety Report 11630724 (Version 3)
Quarter: 2015Q4

REPORT INFORMATION
  Report Type: Spontaneous
  Country: US (occurrence: US)
  Receive Date: 20151014
  Receipt Date: 20151217
  Transmission Date: 20160304
  Serious: No
  Sender: FDA-Public Use
  Company Number: GXBR2015US002118

PATIENT
  Sex: Male

DRUGS (7)
  1. ALEVE [Concomitant]
     Active Substance: NAPROXEN SODIUM
     Dosage: UNK DF, PRN
  2. ATORVASTATIN [Concomitant]
     Active Substance: ATORVASTATIN
     Indication: HIGH DENSITY LIPOPROTEIN
     Dosage: UNK DF, UNK
  3. CLOTRIMAZOLE AND BETAMETHASONE [Suspect]
     Active Substance: BETAMETHASONE\CLOTRIMAZOLE
     Indication: PROPHYLAXIS
     Dosage: 1% CLOTRIMAZOLE AND 0.05% BETAMETHASONE, UNK
     Route: 061
  4. LEVOTHYROXINE. [Concomitant]
     Active Substance: LEVOTHYROXINE
     Indication: HYPOTHYROIDISM
     Dosage: UNK
  5. ZOLPIDEM [Concomitant]
     Active Substance: ZOLPIDEM\ZOLPIDEM TARTRATE
     Indication: INSOMNIA
     Dosage: UNK DF, UNK
  6. IBUPROFEN. [Concomitant]
     Active Substance: IBUPROFEN
     Dosage: UNK DF, PRN
  7. METFORMIN [Concomitant]
     Active Substance: METFORMIN HYDROCHLORIDE
     Indication: TYPE 2 DIABETES MELLITUS
     Dosage: UNK DF, UNK

REACTIONS (1)
  - Application site pain [Not Recovered/Not Resolved]
